FAERS Safety Report 17367038 (Version 2)
Quarter: 2020Q1

REPORT INFORMATION
  Report Type: Spontaneous
  Country: US (occurrence: US)
  Receive Date: 20200204
  Receipt Date: 20200204
  Transmission Date: 20200409
  Serious: No
  Sender: FDA-Public Use
  Company Number: US-ALLERGAN-1907079US

PATIENT
  Sex: Female

DRUGS (3)
  1. BOTOX COSMETIC [Suspect]
     Active Substance: ONABOTULINUMTOXINA
     Indication: SKIN WRINKLING
     Dosage: 5 UNITS, SINGLE
     Route: 030
     Dates: start: 20190210, end: 20190210
  2. BOTOX COSMETIC [Suspect]
     Active Substance: ONABOTULINUMTOXINA
     Indication: SKIN WRINKLING
     Dosage: 45 IU, SINGLE
     Route: 030
     Dates: start: 20190202, end: 20190202
  3. BOTOX COSMETIC [Suspect]
     Active Substance: ONABOTULINUMTOXINA
     Indication: SKIN WRINKLING

REACTIONS (6)
  - Brow ptosis [Unknown]
  - Facial paralysis [Recovered/Resolved]
  - Viral infection [Unknown]
  - Paraesthesia [Unknown]
  - Decreased immune responsiveness [Unknown]
  - Pyrexia [Unknown]

NARRATIVE: CASE EVENT DATE: 201902
